FAERS Safety Report 6277957-X (Version None)
Quarter: 2009Q3

REPORT INFORMATION
  Report Type: 
  Country: None (occurrence: None)
  Receive Date: 20090722
  Receipt Date: 20090714
  Transmission Date: 20100115
  Serious: Yes (Disabling)
  Sender: FDA-Public Use
  Company Number: JP-JNJFOC-20090704887

PATIENT
  Age: 81 Year
  Sex: Female

DRUGS (4)
  1. FINIBAX [Suspect]
     Route: 041
  2. FINIBAX [Suspect]
     Route: 041
  3. FINIBAX [Suspect]
     Indication: PNEUMONIA
     Route: 041
  4. ZYVOX [Concomitant]
     Route: 065

REACTIONS (1)
  - RENAL FAILURE [None]
